FAERS Safety Report 16729066 (Version 1)
Quarter: 2019Q4

REPORT INFORMATION
  Report Type: Spontaneous
  Country: US (occurrence: US)
  Receive Date: 20190821
  Receipt Date: 20190821
  Transmission Date: 20200122
  Serious: Yes (Other)
  Sender: FDA-Public Use
  Company Number: None

PATIENT
  Age: 23 Year
  Sex: Female
  Weight: 110.25 kg

DRUGS (7)
  1. PREDNISONE. [Concomitant]
     Active Substance: PREDNISONE
  2. CYCLOBENZAPRINE. [Suspect]
     Active Substance: CYCLOBENZAPRINE
     Indication: BACK PAIN
     Dosage: ?          QUANTITY:1 TABLET(S);?
     Route: 048
     Dates: start: 20190814, end: 20190820
  3. TOPAMAX [Concomitant]
     Active Substance: TOPIRAMATE
  4. ZOLOFT [Concomitant]
     Active Substance: SERTRALINE HYDROCHLORIDE
  5. ZYPRIDONE [Concomitant]
  6. TURBAFINE [Concomitant]
  7. GABAPENTIM [Concomitant]

REACTIONS (4)
  - Hypoaesthesia [None]
  - Peripheral swelling [None]
  - Tremor [None]
  - Sensory loss [None]

NARRATIVE: CASE EVENT DATE: 20190819
